FAERS Safety Report 14253246 (Version 2)
Quarter: 2017Q4

REPORT INFORMATION
  Report Type: Report from Study
  Country: US (occurrence: US)
  Receive Date: 20171205
  Receipt Date: 20171218
  Transmission Date: 20180321
  Serious: Yes (Other)
  Sender: FDA-Public Use
  Company Number: US-JNJFOC-20171204935

PATIENT
  Sex: Female

DRUGS (2)
  1. STELARA [Suspect]
     Active Substance: USTEKINUMAB
     Indication: CROHN^S DISEASE
     Route: 042
     Dates: start: 20171005
  2. STELARA [Suspect]
     Active Substance: USTEKINUMAB
     Indication: CROHN^S DISEASE
     Dosage: INITIAL MAINTENANCE DOSE
     Route: 042
     Dates: start: 20171207

REACTIONS (4)
  - Pneumonia [Unknown]
  - Bronchitis [Unknown]
  - Inflammation [Unknown]
  - Middle ear effusion [Unknown]

NARRATIVE: CASE EVENT DATE: 2017
